FAERS Safety Report 9699177 (Version 1)
Quarter: 2013Q4

REPORT INFORMATION
  Report Type: Spontaneous
  Country: US (occurrence: US)
  Receive Date: 20131120
  Receipt Date: 20131120
  Transmission Date: 20140711
  Serious: No
  Sender: FDA-Public Use
  Company Number: US-GILEAD-2008-0015020

PATIENT
  Age: 45 Year
  Sex: Female
  Weight: 71.21 kg

DRUGS (9)
  1. LETAIRIS [Suspect]
     Indication: PULMONARY ARTERIAL HYPERTENSION
     Route: 048
     Dates: start: 20070928
  2. ENALAPRIL [Concomitant]
     Indication: ESSENTIAL HYPERTENSION
     Route: 048
  3. CLONIDINE [Concomitant]
     Indication: ESSENTIAL HYPERTENSION
     Route: 048
  4. NORVASC [Concomitant]
     Indication: ESSENTIAL HYPERTENSION
     Route: 048
  5. LEVOTHROID [Concomitant]
     Indication: HYPOTHYROIDISM
     Route: 048
  6. BUSPIRONE [Concomitant]
     Indication: ANXIETY
     Route: 048
  7. PROZAC [Concomitant]
     Indication: DEPRESSION
     Route: 048
  8. CYTOMEL [Concomitant]
     Indication: HYPOTHYROIDISM
     Route: 048
  9. NEXIUM [Concomitant]
     Indication: GASTROOESOPHAGEAL REFLUX DISEASE
     Route: 048

REACTIONS (1)
  - Abdominal pain upper [Not Recovered/Not Resolved]
